FAERS Safety Report 7691101-3 (Version None)
Quarter: 2011Q3

REPORT INFORMATION
  Report Type: 
  Country: None (occurrence: None)
  Receive Date: 20110818
  Receipt Date: 20110816
  Transmission Date: 20111222
  Serious: Yes (Hospitalization)
  Sender: FDA-Public Use
  Company Number: LT-SANOFI-AVENTIS-2011SA051019

PATIENT
  Age: 27 Year
  Sex: Female
  Weight: 70 kg

DRUGS (2)
  1. HUMULIN R [Suspect]
     Dosage: UNKNOWN AMOUNT
     Dates: start: 20110707, end: 20110727
  2. APIDRA [Suspect]
     Dosage: UNKNOWN AMOUNT
     Dates: start: 20110707, end: 20110727

REACTIONS (3)
  - SOMNOLENCE [None]
  - ASTHENIA [None]
  - SUICIDE ATTEMPT [None]
